FAERS Safety Report 8032993-8 (Version None)
Quarter: 2011Q4

REPORT INFORMATION
  Report Type: 
  Country: None (occurrence: None)
  Receive Date: 20111223
  Receipt Date: 20111212
  Transmission Date: 20120403
  Serious: Yes (Hospitalization)
  Sender: FDA-Public Use
  Company Number: 2011SP058339

PATIENT
  Age: 63 Year
  Sex: Female

DRUGS (7)
  1. ACETAMINOPHEN W/ CODEINE [Suspect]
     Indication: PAIN
     Dosage: PRN;PO
     Route: 048
     Dates: end: 20110713
  2. LEVOTHYROXINE SODIUM [Concomitant]
  3. NOCTAMIDE (LORMETAZEPAM) [Suspect]
     Indication: INSOMNIA
     Dosage: 2 MG;QD;PO
     Route: 048
     Dates: end: 20110713
  4. TEGRETOL [Suspect]
     Indication: BIPOLAR I DISORDER
     Dosage: 2 DF;QD;PO
     Route: 048
     Dates: start: 20110620, end: 20110713
  5. XANAX [Suspect]
     Indication: ANXIETY
     Dosage: 0.25 MG;TID;PO
     Route: 048
     Dates: end: 20110713
  6. DESLORATADINE [Suspect]
     Indication: PRODUCT USED FOR UNKNOWN INDICATION
     Dosage: 5 MG;QD;PO
     Route: 048
     Dates: end: 20110713
  7. LITHIUM CARBONATE [Concomitant]

REACTIONS (3)
  - CYTOLYTIC HEPATITIS [None]
  - DRUG RASH WITH EOSINOPHILIA AND SYSTEMIC SYMPTOMS [None]
  - CHOLESTASIS [None]
